FAERS Safety Report 15390031 (Version 1)
Quarter: 2018Q3

REPORT INFORMATION
  Report Type: Spontaneous
  Country: GB (occurrence: GB)
  Receive Date: 20180917
  Receipt Date: 20180917
  Transmission Date: 20181010
  Serious: Yes (Other)
  Sender: FDA-Public Use
  Company Number: GB-TEVA-2018-GB-955079

PATIENT
  Sex: Female

DRUGS (3)
  1. BCG [Suspect]
     Active Substance: BCG VACCINE
     Indication: MALIGNANT POLYP
     Route: 065
  2. THYROXINE [Concomitant]
     Active Substance: LEVOTHYROXINE
  3. EZETIMIBE. [Suspect]
     Active Substance: EZETIMIBE
     Indication: BLOOD CHOLESTEROL INCREASED
     Route: 048

REACTIONS (2)
  - Rash [Unknown]
  - Bladder disorder [Unknown]
